FAERS Safety Report 19173529 (Version 1)
Quarter: 2021Q2

REPORT INFORMATION
  Report Type: Spontaneous
  Country: US (occurrence: US)
  Receive Date: 20210422
  Receipt Date: 20210422
  Transmission Date: 20210717
  Serious: No
  Sender: FDA-Public Use
  Company Number: None

PATIENT
  Age: 58 Year
  Sex: Male

DRUGS (1)
  1. HUMIRA [Suspect]
     Active Substance: ADALIMUMAB
     Indication: RHEUMATOID ARTHRITIS
     Dosage: ?          OTHER FREQUENCY:14 DAYS;?
     Route: 058
     Dates: start: 20200630, end: 20210112

REACTIONS (6)
  - Therapy non-responder [None]
  - Hip arthroplasty [None]
  - Device related infection [None]
  - Spinal operation [None]
  - Surgical procedure repeated [None]
  - Shoulder operation [None]
